FAERS Safety Report 10223765 (Version 1)
Quarter: 2014Q2

REPORT INFORMATION
  Report Type: Spontaneous
  Country: US (occurrence: None)
  Receive Date: 20140605
  Receipt Date: 20140605
  Transmission Date: 20141212
  Serious: Yes (Hospitalization, Other)
  Sender: FDA-Public Use
  Company Number: HYP201402-000010

PATIENT
  Age: 2 Year
  Sex: Female
  Weight: 13 kg

DRUGS (4)
  1. RAVICTI (GLYCEROL PHENYLBUTYRATE) ORAL LIQUID [Suspect]
     Indication: AMINO ACID METABOLISM DISORDER
     Route: 048
     Dates: start: 201310
  2. AMMONUL [Suspect]
     Indication: HYPERAMMONAEMIA
     Dosage: 3,480MG, IN 90 MINUTES, IV;
     Route: 042
     Dates: start: 20140128, end: 20140128
  3. CITRULLINE [Concomitant]
  4. LEVOCARNITINE [Concomitant]

REACTIONS (14)
  - Metabolic acidosis [None]
  - Tachypnoea [None]
  - Tachycardia [None]
  - Hyperammonaemic crisis [None]
  - Decreased appetite [None]
  - Nausea [None]
  - Vomiting [None]
  - Diarrhoea [None]
  - Somnolence [None]
  - Lethargy [None]
  - Dehydration [None]
  - Respiratory syncytial virus test positive [None]
  - Hyperammonaemia [None]
  - Lethargy [None]
